FAERS Safety Report 8322975-0 (Version None)
Quarter: 2012Q2

REPORT INFORMATION
  Report Type: 
  Country: None (occurrence: None)
  Receive Date: 20120430
  Receipt Date: 20120425
  Transmission Date: 20120825
  Serious: Yes (Hospitalization)
  Sender: FDA-Public Use
  Company Number: IT-PFIZER INC-2012099309

PATIENT
  Age: 44 Year
  Sex: Female

DRUGS (8)
  1. ASPIRIN [Concomitant]
     Dosage: UNK
  2. ACETAMINOPHEN AND CODEINE PHOSPHATE [Suspect]
     Dosage: 16 TABLETS
     Route: 048
     Dates: start: 20120414, end: 20120414
  3. XANAX [Suspect]
     Dosage: 20 TABLETS
     Route: 048
     Dates: start: 20120414, end: 20120414
  4. CLONAZEPAM [Suspect]
     Dosage: 10 TABLETS (2 MG)
     Route: 048
     Dates: start: 20120414, end: 20120414
  5. ESCITALOPRAM [Suspect]
     Dosage: 28 TABLETS (20 MG)
     Route: 048
     Dates: start: 20120414, end: 20120414
  6. MINIAS [Suspect]
     Dosage: 30 TABLETS (1 MG)
     Route: 048
     Dates: start: 20120414, end: 20120414
  7. LYRICA [Concomitant]
     Dosage: 150 MG, 1X/DAY
     Route: 048
  8. DULOXETINE HYDROCHLORIDE [Concomitant]
     Dosage: 60 MG, UNK
     Dates: start: 20120214, end: 20120414

REACTIONS (3)
  - SOPOR [None]
  - BRADYPNOEA [None]
  - INTENTIONAL SELF-INJURY [None]
